FAERS Safety Report 20461210 (Version 1)
Quarter: 2022Q1

REPORT INFORMATION
  Report Type: Spontaneous
  Country: PA (occurrence: None)
  Receive Date: 20220210
  Receipt Date: 20220210
  Transmission Date: 20220423
  Serious: Yes (Life-Threatening, Hospitalization, Disabling)
  Sender: FDA-Public Use
  Company Number: None

PATIENT
  Age: 22 Year
  Sex: Female
  Weight: 60.75 kg

DRUGS (1)
  1. DEPO-PROVERA [Suspect]
     Active Substance: MEDROXYPROGESTERONE ACETATE
     Indication: Contraception
     Dosage: OTHER QUANTITY : 1 INJECTION(S);?OTHER FREQUENCY : 1 EVERY 3 MONTH;?
     Route: 030
     Dates: start: 20211213

REACTIONS (9)
  - Haemorrhage [None]
  - Abdominal distension [None]
  - Renal pain [None]
  - Fluid retention [None]
  - Dizziness [None]
  - Nausea [None]
  - Muscle spasms [None]
  - Dyspepsia [None]
  - Impaired work ability [None]

NARRATIVE: CASE EVENT DATE: 20211225
